FAERS Safety Report 10182296 (Version 1)
Quarter: 2014Q2

REPORT INFORMATION
  Report Type: Spontaneous
  Country: CN (occurrence: CN)
  Receive Date: 20140520
  Receipt Date: 20140520
  Transmission Date: 20141212
  Serious: Yes (Hospitalization)
  Sender: FDA-Public Use
  Company Number: CN-ROCHE-1402823

PATIENT
  Sex: Male
  Weight: 50 kg

DRUGS (2)
  1. CELLCEPT [Suspect]
     Indication: RENAL TRANSPLANT
     Route: 048
     Dates: start: 20130830, end: 20131021
  2. CELLCEPT [Suspect]
     Route: 048
     Dates: start: 20131021

REACTIONS (2)
  - Bone marrow failure [Recovering/Resolving]
  - Ascites [Recovering/Resolving]
